FAERS Safety Report 21663313 (Version 1)
Quarter: 2022Q4

REPORT INFORMATION
  Report Type: Spontaneous
  Country: US (occurrence: None)
  Receive Date: 20221129
  Receipt Date: 20221129
  Transmission Date: 20230113
  Serious: No
  Sender: FDA-Public Use
  Company Number: None

PATIENT
  Sex: 0

DRUGS (1)
  1. LISINOPRIL [Suspect]
     Active Substance: LISINOPRIL

REACTIONS (1)
  - Therapy non-responder [None]
